FAERS Safety Report 9237959 (Version 3)
Quarter: 2013Q2

REPORT INFORMATION
  Report Type: Spontaneous
  Country: IT (occurrence: IT)
  Receive Date: 20130418
  Receipt Date: 20130514
  Transmission Date: 20140414
  Serious: Yes (Hospitalization)
  Sender: FDA-Public Use
  Company Number: IT-BAYER-2013-046068

PATIENT
  Age: 34 Year
  Sex: Female
  Weight: 58 kg

DRUGS (1)
  1. YASMIN [Suspect]
     Dosage: DAILY DOSE 1 DF
     Route: 048
     Dates: start: 20110621, end: 20110921

REACTIONS (3)
  - Intracranial venous sinus thrombosis [Recovering/Resolving]
  - Brain oedema [Recovering/Resolving]
  - Cerebral ischaemia [Recovering/Resolving]
